FAERS Safety Report 7250618-6 (Version None)
Quarter: 2011Q1

REPORT INFORMATION
  Report Type: 
  Country: None (occurrence: None)
  Receive Date: 20110128
  Receipt Date: 20110117
  Transmission Date: 20110831
  Serious: Yes (Congenital Anomaly)
  Sender: FDA-Public Use
  Company Number: PHHY2011IT06031

PATIENT
  Sex: Male

DRUGS (2)
  1. OMEPRAZOLE [Suspect]
     Dosage: UNK
     Dates: start: 20090713
  2. DOMPERIDONE [Suspect]
     Dosage: UNK
     Dates: start: 20091113

REACTIONS (1)
  - CLEFT PALATE [None]
